FAERS Safety Report 24815107 (Version 1)
Quarter: 2025Q1

REPORT INFORMATION
  Report Type: Spontaneous
  Country: US (occurrence: US)
  Receive Date: 20250107
  Receipt Date: 20250107
  Transmission Date: 20250408
  Serious: Yes (Other)
  Sender: CHEPLAPHARM
  Company Number: US-ASTRAZENECA-202412USA023952US

PATIENT
  Sex: Male

DRUGS (2)
  1. BUDESONIDE [Suspect]
     Active Substance: BUDESONIDE
  2. VELSIPITY [Concomitant]
     Active Substance: ETRASIMOD ARGININE

REACTIONS (3)
  - Osteogenesis imperfecta [Unknown]
  - Insomnia [Unknown]
  - Attention deficit hyperactivity disorder [Unknown]
